FAERS Safety Report 17279963 (Version 1)
Quarter: 2020Q1

REPORT INFORMATION
  Report Type: Spontaneous
  Country: GB (occurrence: GB)
  Receive Date: 20200116
  Receipt Date: 20200116
  Transmission Date: 20200409
  Serious: Yes (Hospitalization)
  Sender: FDA-Public Use
  Company Number: GB-TEVA-2020-GB-1168343

PATIENT
  Age: 88 Year
  Sex: Female
  Weight: 56 kg

DRUGS (6)
  1. RIVASTIGMINE. [Suspect]
     Active Substance: RIVASTIGMINE
     Dosage: 3 MG 1 DAYS
  2. ATORVASTATIN [Concomitant]
     Active Substance: ATORVASTATIN
     Dosage: AT NIGHT , 1 DOSAGE FORMS 1 DAYS
     Dates: start: 20190524
  3. BISOPROLOL [Concomitant]
     Active Substance: BISOPROLOL
     Dosage: EACH MORNING , 1 DOSAGE FORMS 1 DAYS
     Dates: start: 20190524
  4. RIVAROXABAN [Concomitant]
     Active Substance: RIVAROXABAN
     Dosage: 1 DOSAGE FORMS  1 DAYS
     Dates: start: 20190524
  5. AMITRIPTYLINE HYDROCHLORIDE. [Concomitant]
     Active Substance: AMITRIPTYLINE HYDROCHLORIDE
     Dosage: AT NGIHT , 1 DOSAGE FORMS 1 DAYS
     Dates: start: 20190524
  6. OMEPRAZOLE. [Concomitant]
     Active Substance: OMEPRAZOLE
     Dosage: 80 MG 1 DAYS
     Dates: start: 20191122

REACTIONS (1)
  - Electrocardiogram QT prolonged [Recovering/Resolving]
